FAERS Safety Report 18371816 (Version 1)
Quarter: 2020Q4

REPORT INFORMATION
  Report Type: Report from Study
  Country: SE (occurrence: SE)
  Receive Date: 20201012
  Receipt Date: 20201012
  Transmission Date: 20210114
  Serious: Yes (Hospitalization)
  Sender: FDA-Public Use
  Company Number: SE-JNJFOC-20201000939

PATIENT
  Age: 74 Year
  Sex: Female
  Weight: 92 kg

DRUGS (13)
  1. FUCIDIN (FUSIDIC ACID) [Concomitant]
     Active Substance: FUSIDIC ACID
     Indication: SKIN ULCER
     Route: 061
  2. ESCITALOPRAM [Concomitant]
     Active Substance: ESCITALOPRAM OXALATE
     Route: 048
  3. OXASCAND [Concomitant]
     Active Substance: OXAZEPAM
     Indication: ANXIETY
     Route: 048
  4. ESKETAMINE [Suspect]
     Active Substance: ESKETAMINE
     Indication: PRODUCT USED FOR UNKNOWN INDICATION
  5. VAGIFEM [Concomitant]
     Active Substance: ESTRADIOL
     Indication: MENOPAUSAL SYMPTOMS
  6. CYMBALTA [Concomitant]
     Active Substance: DULOXETINE HYDROCHLORIDE
     Route: 048
  7. OXYCONTIN [Concomitant]
     Active Substance: OXYCODONE HYDROCHLORIDE
     Indication: DEVICE BREAKAGE
     Route: 048
  8. PANTOPRAZOL [Concomitant]
     Active Substance: PANTOPRAZOLE SODIUM
     Indication: GASTRITIS
     Route: 048
  9. NAPROXEN. [Concomitant]
     Active Substance: NAPROXEN
     Indication: RHEUMATIC DISORDER
     Route: 048
  10. OXYCONTIN [Concomitant]
     Active Substance: OXYCODONE HYDROCHLORIDE
     Indication: OSTEOARTHRITIS
     Route: 048
  11. NORFLOXACIN [Concomitant]
     Active Substance: NORFLOXACIN
     Indication: CYSTITIS
     Route: 048
  12. CYMBALTA [Concomitant]
     Active Substance: DULOXETINE HYDROCHLORIDE
     Route: 048
  13. NORFLOXACIN [Concomitant]
     Active Substance: NORFLOXACIN
     Indication: CYSTITIS
     Route: 048

REACTIONS (1)
  - Device breakage [Recovering/Resolving]

NARRATIVE: CASE EVENT DATE: 20200920
